FAERS Safety Report 12185365 (Version 1)
Quarter: 2016Q1

REPORT INFORMATION
  Report Type: Spontaneous
  Country: SI (occurrence: SI)
  Receive Date: 20160316
  Receipt Date: 20160316
  Transmission Date: 20160526
  Serious: Yes (Other)
  Sender: FDA-Public Use
  Company Number: SI-MYLANLABS-2016M1011065

PATIENT

DRUGS (4)
  1. PROGESTERONE. [Suspect]
     Active Substance: PROGESTERONE
     Indication: HORMONE REPLACEMENT THERAPY
     Dosage: 6% AT A DAILY DOSE OF PUSH THE PUMP ONCE
     Route: 061
  2. ESTRADIOL. [Suspect]
     Active Substance: ESTRADIOL
     Indication: HORMONE REPLACEMENT THERAPY
     Dosage: 1 MG/DAY
     Route: 048
     Dates: end: 201004
  3. ESTRADIOL. [Suspect]
     Active Substance: ESTRADIOL
     Dosage: 2% AT A DAILY DOSE OF PUSH THE PUMP ONCE
     Route: 061
  4. NORETHISTERONE [Suspect]
     Active Substance: NORETHINDRONE
     Indication: HORMONE REPLACEMENT THERAPY
     Dosage: 0.5 MG/DAY
     Route: 048
     Dates: end: 201004

REACTIONS (3)
  - Uterine leiomyoma [Unknown]
  - Hypersensitivity [Unknown]
  - Endometrial hyperplasia [Unknown]
